FAERS Safety Report 16295165 (Version 1)
Quarter: 2019Q2

REPORT INFORMATION
  Report Type: Spontaneous
  Country: US (occurrence: US)
  Receive Date: 20190509
  Receipt Date: 20190509
  Transmission Date: 20190711
  Serious: No
  Sender: FDA-Public Use
  Company Number: US-ROCHE-2252966

PATIENT
  Sex: Female
  Weight: 54.48 kg

DRUGS (2)
  1. ESBRIET [Suspect]
     Active Substance: PIRFENIDONE
     Indication: PULMONARY FIBROSIS
     Dosage: 3 PILLS 3 TIMES PER DAY
     Route: 048
     Dates: end: 2018
  2. ESBRIET [Suspect]
     Active Substance: PIRFENIDONE
     Dosage: NOT TAKING AS MANY
     Route: 048

REACTIONS (1)
  - Abdominal pain upper [Recovered/Resolved]
